FAERS Safety Report 9591887 (Version 3)
Quarter: 2014Q1

REPORT INFORMATION
  Report Type: Spontaneous
  Country: US (occurrence: US)
  Receive Date: 20131004
  Receipt Date: 20140225
  Transmission Date: 20141002
  Serious: Yes (Other)
  Sender: FDA-Public Use
  Company Number: US-AMGEN-USASP2012071159

PATIENT
  Age: 52 Year
  Sex: Female
  Weight: 61.22 kg

DRUGS (11)
  1. ENBREL [Suspect]
     Indication: RHEUMATOID ARTHRITIS
     Dosage: 50 MG, QWK
     Route: 058
     Dates: start: 20120423, end: 201208
  2. PLAQUENIL                          /00072602/ [Concomitant]
     Dosage: 200 MG, UNK
  3. FISH OIL [Concomitant]
     Dosage: UNK
  4. VITA D                             /00107901/ [Concomitant]
     Dosage: UNK
  5. FLAXSEED OIL [Concomitant]
     Dosage: UNK
  6. GLUCOSAMINE [Concomitant]
     Dosage: 750 MG, UNK
  7. LUTEIN                             /01638501/ [Concomitant]
     Dosage: 15-0.7 MG
  8. ASPIRIN [Concomitant]
     Dosage: 81 MG, UNK
  9. BENADRYL                           /00000402/ [Concomitant]
     Dosage: 25 MG, UNK
  10. BIOTIN [Concomitant]
     Dosage: 5 MG, UNK
  11. VITAMIN D3 [Concomitant]
     Dosage: 5000 UNIT, UNK

REACTIONS (2)
  - Latent tuberculosis [Unknown]
  - Injection site urticaria [Unknown]
